FAERS Safety Report 13331407 (Version 1)
Quarter: 2017Q1

REPORT INFORMATION
  Report Type: Spontaneous
  Country: US (occurrence: US)
  Receive Date: 20170314
  Receipt Date: 20170314
  Transmission Date: 20170428
  Serious: No
  Sender: FDA-Public Use
  Company Number: US-JNJFOC-20170115051

PATIENT
  Age: 3 Year
  Sex: Female
  Weight: 16.33 kg

DRUGS (2)
  1. CHILDRENS MOTRIN [Suspect]
     Active Substance: IBUPROFEN
     Indication: PYREXIA
     Route: 048
  2. CHILDRENS MOTRIN [Suspect]
     Active Substance: IBUPROFEN
     Indication: PAIN
     Route: 048

REACTIONS (2)
  - Body temperature decreased [Recovered/Resolved]
  - Chills [Recovered/Resolved]
